FAERS Safety Report 13772430 (Version 1)
Quarter: 2017Q3

REPORT INFORMATION
  Report Type: Spontaneous
  Country: US (occurrence: US)
  Receive Date: 20170720
  Receipt Date: 20170720
  Transmission Date: 20171127
  Serious: No
  Sender: FDA-Public Use
  Company Number: US-PFIZER INC-2017304986

PATIENT
  Age: 45 Year
  Sex: Female
  Weight: 96.15 kg

DRUGS (2)
  1. MEDROXYPROGESTERONE ACETATE. [Suspect]
     Active Substance: MEDROXYPROGESTERONE ACETATE
     Indication: OVULATION PAIN
     Dosage: 1 ML, EVERY 3 MONTHS
     Route: 030
     Dates: start: 20170706
  2. ESTRADIOL. [Concomitant]
     Active Substance: ESTRADIOL
     Indication: OVULATION DISORDER
     Dosage: 1 MG, DAILY
     Route: 048
     Dates: end: 201701

REACTIONS (12)
  - Fatigue [Unknown]
  - Pain [Unknown]
  - Muscle spasms [Unknown]
  - Discomfort [Unknown]
  - Diarrhoea [Not Recovered/Not Resolved]
  - Adnexa uteri pain [Unknown]
  - Product use in unapproved indication [Unknown]
  - Abdominal pain [Not Recovered/Not Resolved]
  - Burning sensation [Unknown]
  - Asthenia [Unknown]
  - Flatulence [Unknown]
  - Vomiting [Unknown]

NARRATIVE: CASE EVENT DATE: 2017
